FAERS Safety Report 21394319 (Version 1)
Quarter: 2022Q3

REPORT INFORMATION
  Report Type: Spontaneous
  Country: JP (occurrence: JP)
  Receive Date: 20220930
  Receipt Date: 20220930
  Transmission Date: 20221027
  Serious: Yes (Other)
  Sender: FDA-Public Use
  Company Number: JP-SUN PHARMACEUTICAL INDUSTRIES LTD-2022RR-356250

PATIENT
  Age: 71 Year
  Sex: Male

DRUGS (8)
  1. IRINOTECAN [Suspect]
     Active Substance: IRINOTECAN
     Indication: Rectal adenocarcinoma
     Dosage: 100 MILLIGRAM/SQ. METER, UNK, ON DAY 1
     Route: 065
  2. IRINOTECAN [Suspect]
     Active Substance: IRINOTECAN
     Dosage: 150 MILLIGRAM/SQ. METER, CYCLICAL, ON DAY 1, 11 COURSES
     Route: 065
  3. CAPECITABINE [Suspect]
     Active Substance: CAPECITABINE
     Indication: Rectal adenocarcinoma
     Dosage: 1000 MILLIGRAM/SQ. METER, BID
     Route: 048
  4. OXALIPLATIN [Suspect]
     Active Substance: OXALIPLATIN
     Indication: Rectal adenocarcinoma
     Dosage: 130 MILLIGRAM/SQ. METER, CYCLICAL, DAY 1, 13 COURSES
     Route: 065
  5. BEVACIZUMAB [Suspect]
     Active Substance: BEVACIZUMAB
     Indication: Rectal adenocarcinoma
     Dosage: 7.5 MILLIGRAM/KILOGRAM, CYCLICAL, DAY 1, 13 COURSES
     Route: 065
  6. BEVACIZUMAB [Suspect]
     Active Substance: BEVACIZUMAB
     Dosage: 7.5 MILLIGRAM/KILOGRAM, UNK
     Route: 065
  7. TS-1 [Suspect]
     Active Substance: GIMERACIL\OTERACIL\TEGAFUR
     Indication: Rectal adenocarcinoma
     Dosage: 60 MILLIGRAM, BID
     Route: 048
  8. PANITUMUMAB [Suspect]
     Active Substance: PANITUMUMAB
     Indication: Rectal adenocarcinoma
     Dosage: 6 MILLIGRAM/KILOGRAM, CYCLICAL, ON DAY 1, 11 COURSES
     Route: 065

REACTIONS (7)
  - Malignant neoplasm progression [Unknown]
  - Interstitial lung disease [Unknown]
  - Stomatitis [Recovering/Resolving]
  - Asthenia [Unknown]
  - Proctalgia [Unknown]
  - Decreased appetite [Unknown]
  - Therapeutic product effect incomplete [Unknown]
